FAERS Safety Report 7773813-6 (Version None)
Quarter: 2011Q3

REPORT INFORMATION
  Report Type: 
  Country: None (occurrence: None)
  Receive Date: 20110923
  Receipt Date: 20110913
  Transmission Date: 20111222
  Serious: No
  Sender: FDA-Public Use
  Company Number: US-JNJFOC-20110906758

PATIENT
  Sex: Male
  Weight: 104.33 kg

DRUGS (8)
  1. DURAGESIC-100 [Suspect]
     Route: 062
     Dates: start: 20110501
  2. MUSCLE RELAXANT [Concomitant]
     Indication: NEURALGIA
     Route: 065
  3. MUSCLE RELAXANT [Concomitant]
     Indication: BACK PAIN
     Route: 065
  4. DURAGESIC-100 [Suspect]
     Indication: NEURALGIA
     Route: 062
  5. DURAGESIC-100 [Suspect]
     Route: 062
     Dates: start: 20110501
  6. DURAGESIC-100 [Suspect]
     Indication: BACK PAIN
     Route: 062
  7. NEURONTIN [Concomitant]
     Indication: BACK PAIN
     Route: 048
     Dates: start: 20080101
  8. NEURONTIN [Concomitant]
     Indication: NEURALGIA
     Route: 048
     Dates: start: 20080101

REACTIONS (6)
  - PRODUCT ADHESION ISSUE [None]
  - WRONG TECHNIQUE IN DRUG USAGE PROCESS [None]
  - HYPERHIDROSIS [None]
  - APPLICATION SITE IRRITATION [None]
  - APPLICATION SITE PRURITUS [None]
  - APPLICATION SITE REACTION [None]
